APPROVED DRUG PRODUCT: QUETIAPINE FUMARATE
Active Ingredient: QUETIAPINE FUMARATE
Strength: EQ 400MG BASE
Dosage Form/Route: TABLET, EXTENDED RELEASE;ORAL
Application: A202939 | Product #005 | TE Code: AB
Applicant: MEDICAP LABORATORIES
Approved: May 9, 2017 | RLD: No | RS: No | Type: RX